FAERS Safety Report 5926101-4 (Version None)
Quarter: 2008Q4

REPORT INFORMATION
  Report Type: 
  Country: None (occurrence: None)
  Receive Date: 20081016
  Receipt Date: 20081003
  Transmission Date: 20090506
  Serious: Yes (Other)
  Sender: FDA-Public Use
  Company Number: UKP08000190

PATIENT
  Age: 74 Year
  Sex: Female
  Weight: 53 kg

DRUGS (4)
  1. ACTONEL [Suspect]
     Indication: OSTEOPOROSIS
     Dosage: ORAL
     Route: 048
     Dates: start: 20080722, end: 20080722
  2. CALCICHEW D3 (CALCIUM CARBONATE, COLECALCIFEROL) [Concomitant]
  3. IBANDRONIC ACID (IBANDRONIC ACID) [Concomitant]
  4. LISINOPRIL + HIDROCLOROTIAZIDA (HYDROCHLOROTHIAZIDE, LISINOPRIL) [Concomitant]

REACTIONS (2)
  - LIP SWELLING [None]
  - SWOLLEN TONGUE [None]
